FAERS Safety Report 13774163 (Version 1)
Quarter: 2017Q3

REPORT INFORMATION
  Report Type: Spontaneous
  Country: US (occurrence: US)
  Receive Date: 20170720
  Receipt Date: 20170720
  Transmission Date: 20171127
  Serious: No
  Sender: FDA-Public Use
  Company Number: US-RECKITT BENCKISER HEALTHCARE INT LIMITED-RB-89838-2016

PATIENT
  Age: 87 Year
  Sex: Female

DRUGS (3)
  1. MUCINEX DM [Suspect]
     Active Substance: DEXTROMETHORPHAN HYDROBROMIDE\GUAIFENESIN
     Indication: PRODUCT USED FOR UNKNOWN INDICATION
     Dosage: UNK, BID (FOR 14 MONTHS)
     Route: 065
     Dates: start: 201501, end: 201603
  2. PANTOPRAZOLE 40 [Suspect]
     Active Substance: PANTOPRAZOLE SODIUM
     Indication: ABDOMINAL DISTENSION
     Dosage: UNK
     Route: 065
     Dates: end: 201603
  3. PANTOPRAZOLE 40 [Suspect]
     Active Substance: PANTOPRAZOLE SODIUM
     Indication: FLATULENCE

REACTIONS (1)
  - Skin discolouration [Recovering/Resolving]

NARRATIVE: CASE EVENT DATE: 201503
